FAERS Safety Report 18232993 (Version 1)
Quarter: 2020Q3

REPORT INFORMATION
  Report Type: Spontaneous
  Country: CO (occurrence: CO)
  Receive Date: 20200904
  Receipt Date: 20200904
  Transmission Date: 20201103
  Serious: Yes (Other)
  Sender: FDA-Public Use
  Company Number: CO-EMD SERONO-9183445

PATIENT
  Age: 67 Year
  Sex: Male
  Weight: 59 kg

DRUGS (13)
  1. JADENU [Suspect]
     Active Substance: DEFERASIROX
     Indication: MYELODYSPLASTIC SYNDROME
     Route: 048
     Dates: start: 202002
  2. DANAZOL. [Concomitant]
     Active Substance: DANAZOL
     Indication: PRODUCT USED FOR UNKNOWN INDICATION
  3. NIMODIPINE. [Concomitant]
     Active Substance: NIMODIPINE
     Indication: PRODUCT USED FOR UNKNOWN INDICATION
  4. JAKAVI [Suspect]
     Active Substance: RUXOLITINIB
     Route: 048
     Dates: start: 201910
  5. LOSARTAN. [Suspect]
     Active Substance: LOSARTAN
     Indication: HYPERTENSION
     Route: 048
  6. METFORMIN [Suspect]
     Active Substance: METFORMIN HYDROCHLORIDE
     Indication: DIABETES MELLITUS
     Route: 048
  7. JAKAVI [Suspect]
     Active Substance: RUXOLITINIB
     Dosage: MONDAY, WEDNESDAY AND FRIDAY AND SATURDAY OR SUNDAY
     Route: 048
     Dates: start: 2019, end: 2019
  8. JAKAVI [Suspect]
     Active Substance: RUXOLITINIB
     Route: 048
     Dates: start: 201910
  9. JAKAVI [Suspect]
     Active Substance: RUXOLITINIB
     Route: 048
  10. JAKAVI [Suspect]
     Active Substance: RUXOLITINIB
     Route: 048
  11. JAKAVI [Suspect]
     Active Substance: RUXOLITINIB
     Indication: MYELOFIBROSIS
     Route: 048
     Dates: start: 20180918
  12. JAKAVI [Suspect]
     Active Substance: RUXOLITINIB
     Dosage: MONDAY, WEDNESDAY AND FRIDAY
     Route: 048
     Dates: start: 20190802, end: 2019
  13. JAKAVI [Suspect]
     Active Substance: RUXOLITINIB
     Route: 048

REACTIONS (11)
  - Weight decreased [Unknown]
  - Nausea [Unknown]
  - Off label use [Unknown]
  - Pain [Unknown]
  - Haemoglobin decreased [Unknown]
  - Back pain [Recovered/Resolved]
  - Blood iron increased [Unknown]
  - Fatigue [Unknown]
  - Arthralgia [Recovered/Resolved]
  - General physical health deterioration [Unknown]
  - Pyrexia [Recovered/Resolved]
